FAERS Safety Report 17201540 (Version 1)
Quarter: 2020Q1

REPORT INFORMATION
  Report Type: Spontaneous
  Country: US (occurrence: US)
  Receive Date: 20191221
  Receipt Date: 20191221
  Transmission Date: 20200409
  Serious: Yes (Hospitalization, Other)
  Sender: FDA-Public Use
  Company Number: None

PATIENT
  Age: 16 Year
  Sex: Male
  Weight: 85.5 kg

DRUGS (1)
  1. UDREAM [HERBALS] [Suspect]
     Active Substance: HERBALS
     Indication: SLEEP DISORDER
     Dates: start: 20190930, end: 20190930

REACTIONS (5)
  - Dysarthria [None]
  - Hallucination [None]
  - Abnormal behaviour [None]
  - Thinking abnormal [None]
  - Mood swings [None]

NARRATIVE: CASE EVENT DATE: 20190930
